FAERS Safety Report 9930633 (Version 1)
Quarter: 2014Q1

REPORT INFORMATION
  Report Type: Spontaneous
  Country: US (occurrence: US)
  Receive Date: 20140227
  Receipt Date: 20140227
  Transmission Date: 20141002
  Serious: Yes (Hospitalization)
  Sender: FDA-Public Use
  Company Number: US-B.I. PHARMACEUTICALS,INC./RIDGEFIELD-2014-BI-08374BP

PATIENT
  Age: 62 Year
  Sex: Male
  Weight: 113 kg

DRUGS (3)
  1. CATAPRES TTS [Suspect]
     Indication: HYPERTENSION
     Dosage: DOSE PER APPLICATION: 7.5 MG (0.3 MG / DAY); DAILY DOSE: 52.5 MG(0.21 MG)
     Route: 061
     Dates: start: 1984, end: 20140222
  2. CRESTOR [Concomitant]
     Indication: BLOOD CHOLESTEROL INCREASED
     Dosage: 40 MG
     Route: 048
     Dates: start: 2012
  3. BENICAR [Concomitant]
     Indication: HYPERTENSION
     Dosage: 40 MG
     Route: 048
     Dates: start: 2011

REACTIONS (12)
  - Fall [Recovered/Resolved]
  - Vertebral column mass [Recovered/Resolved]
  - Back injury [Recovered/Resolved]
  - Joint injury [Recovered/Resolved]
  - Wrist fracture [Recovered/Resolved]
  - Pain [Not Recovered/Not Resolved]
  - Hypertension [Recovered/Resolved]
  - Renal disorder [Not Recovered/Not Resolved]
  - Vertigo [Recovered/Resolved]
  - Nasopharyngitis [Recovered/Resolved]
  - Influenza [Recovered/Resolved]
  - Headache [Recovered/Resolved]
